FAERS Safety Report 7429375-6 (Version None)
Quarter: 2011Q2

REPORT INFORMATION
  Report Type: 
  Country: None (occurrence: None)
  Receive Date: 20110414
  Receipt Date: 20110331
  Transmission Date: 20111010
  Serious: Yes (Other)
  Sender: FDA-Public Use
  Company Number: UK-ACCORD-001810

PATIENT
  Age: 77 Year
  Sex: Female

DRUGS (9)
  1. PINDOLOL [Concomitant]
  2. FUROSEMIDE [Concomitant]
  3. CIMETIDINE [Concomitant]
  4. NICORANDIL(NICORANDIL) [Concomitant]
  5. ASPIRIN [Concomitant]
  6. CIPROFLOXACIN [Suspect]
     Indication: URINARY TRACT INFECTION
     Dosage: 2.00-DOSAGE-2.00 TIMES PER- / ORAL
     Route: 048
  7. ISOSORBIDE MONONITRATE [Concomitant]
  8. LEVOTHYROXINE SODIUM [Suspect]
     Dosage: 100.UG-1.00 TIMES PER-1.0DAYS
  9. SIMVASTATIN [Suspect]
     Indication: PRODUCT USED FOR UNKNOWN INDICATION
     Dosage: 40.00-MG-1.00 TIMES PER-1.9DAYS / ORAL
     Route: 048

REACTIONS (9)
  - RHABDOMYOLYSIS [None]
  - URINARY TRACT INFECTION [None]
  - DRUG INTERACTION [None]
  - HAEMOGLOBIN DECREASED [None]
  - BLOOD PRESSURE SYSTOLIC INCREASED [None]
  - TOXICITY TO VARIOUS AGENTS [None]
  - METABOLIC DISORDER [None]
  - BLOOD URINE PRESENT [None]
  - BLOOD UREA INCREASED [None]
